FAERS Safety Report 5061532-9 (Version None)
Quarter: 2006Q3

REPORT INFORMATION
  Report Type: 
  Country: None (occurrence: None)
  Receive Date: 20060725
  Receipt Date: 20060721
  Transmission Date: 20061208
  Serious: Yes (Disabling)
  Sender: FDA-Public Use
  Company Number: US-MERCK-0607USA04352

PATIENT
  Age: 59 Year
  Sex: Female

DRUGS (4)
  1. FOSAMAX [Suspect]
     Indication: OSTEOPOROSIS
     Route: 048
     Dates: start: 20040101, end: 20060628
  2. TOPAMAX [Concomitant]
     Route: 065
  3. ELAVIL [Concomitant]
     Route: 048
  4. VERAPAMIL [Concomitant]
     Route: 065

REACTIONS (1)
  - MIGRAINE [None]
